FAERS Safety Report 9766749 (Version 1)
Quarter: 2013Q4

REPORT INFORMATION
  Report Type: Spontaneous
  Country: US (occurrence: US)
  Receive Date: 20131217
  Receipt Date: 20131217
  Transmission Date: 20140711
  Serious: No
  Sender: FDA-Public Use
  Company Number: US-GLAXOSMITHKLINE-A1032354A

PATIENT
  Age: 67 Year
  Sex: Male
  Weight: 85.9 kg

DRUGS (1)
  1. VOTRIENT [Suspect]
     Indication: RENAL CANCER
     Dosage: 800MG PER DAY
     Route: 048

REACTIONS (3)
  - Anal fissure [Unknown]
  - Rash [Unknown]
  - Glossodynia [Unknown]
